FAERS Safety Report 12010098 (Version 1)
Quarter: 2016Q1

REPORT INFORMATION
  Report Type: Spontaneous
  Country: SE (occurrence: SE)
  Receive Date: 20160205
  Receipt Date: 20160205
  Transmission Date: 20160526
  Serious: Yes (Other)
  Sender: FDA-Public Use
  Company Number: SE-ASTRAZENECA-2016SE10288

PATIENT
  Sex: Female

DRUGS (2)
  1. BRICANYL [Concomitant]
     Active Substance: TERBUTALINE SULFATE
  2. SYMBICORT [Suspect]
     Active Substance: BUDESONIDE\FORMOTEROL FUMARATE DIHYDRATE
     Route: 055
     Dates: start: 1986

REACTIONS (1)
  - Amyotrophic lateral sclerosis [Unknown]
